FAERS Safety Report 8995227 (Version 3)
Quarter: 2013Q1

REPORT INFORMATION
  Report Type: Spontaneous
  Country: US (occurrence: US)
  Receive Date: 20130102
  Receipt Date: 20130326
  Transmission Date: 20140127
  Serious: Yes (Life-Threatening, Hospitalization)
  Sender: FDA-Public Use
  Company Number: US-B.I. PHARMACEUTICALS,INC./RIDGEFIELD-2012-BI-04547BP

PATIENT
  Age: 79 Year
  Sex: Male

DRUGS (12)
  1. PRADAXA [Suspect]
     Indication: ATRIAL FIBRILLATION
     Dates: start: 20121108, end: 20121214
  2. PRADAXA [Suspect]
     Dosage: 300 MG
     Route: 048
     Dates: start: 201212, end: 20121221
  3. COUMADIN [Concomitant]
     Dosage: 10 MG
     Route: 048
  4. TERAZOSIN HCL [Concomitant]
     Dosage: 10 MG
     Route: 048
  5. AMLODIPINE BESYLATE [Concomitant]
     Dosage: 10 MG
     Route: 048
  6. BYSTOLIC [Concomitant]
     Dosage: 5 MG
     Route: 048
  7. VIAGRA [Concomitant]
     Route: 048
  8. ALLOPURINOL [Concomitant]
     Dosage: 100 MG
     Route: 048
  9. MULTIPLE VITAMINS [Concomitant]
     Route: 048
  10. VITAMIN D [Concomitant]
     Route: 048
  11. VALIUM [Concomitant]
     Route: 048
  12. SUMYCIN [Concomitant]
     Route: 048

REACTIONS (6)
  - Pyrexia [Recovered/Resolved]
  - Chest discomfort [Recovered/Resolved]
  - Dyspnoea [Recovered/Resolved]
  - Body temperature increased [Recovered/Resolved]
  - Local swelling [Unknown]
  - Hypoaesthesia [Unknown]
